FAERS Safety Report 22895867 (Version 2)
Quarter: 2023Q4

REPORT INFORMATION
  Report Type: Spontaneous
  Country: US (occurrence: US)
  Receive Date: 20230901
  Receipt Date: 20231005
  Transmission Date: 20240109
  Serious: No
  Sender: FDA-Public Use
  Company Number: US-PFIZER INC-PV202300147638

PATIENT
  Age: 54 Year
  Sex: Male

DRUGS (1)
  1. XELJANZ [Suspect]
     Active Substance: TOFACITINIB CITRATE
     Indication: Castleman^s disease
     Dosage: 5 MG

REACTIONS (9)
  - Diarrhoea [Not Recovered/Not Resolved]
  - Blood cholesterol increased [Unknown]
  - Enzyme level increased [Unknown]
  - Abdominal distension [Unknown]
  - Swelling face [Unknown]
  - Libido decreased [Unknown]
  - Insomnia [Unknown]
  - Off label use [Unknown]
  - Product dose omission issue [Unknown]
